FAERS Safety Report 13491870 (Version 3)
Quarter: 2017Q3

REPORT INFORMATION
  Report Type: Spontaneous
  Country: AT (occurrence: AT)
  Receive Date: 20170427
  Receipt Date: 20170810
  Transmission Date: 20171127
  Serious: Yes (Disabling, Other)
  Sender: FDA-Public Use
  Company Number: PHHY2017AT060733

PATIENT
  Age: 57 Year
  Sex: Female

DRUGS (6)
  1. ZOMETA [Suspect]
     Active Substance: ZOLEDRONIC ACID
     Indication: BREAST CANCER
     Dosage: 1 X INFUSION ZOMETA COLORLESS SOLUTION
     Route: 065
     Dates: start: 20100113
  2. ZOMETA [Suspect]
     Active Substance: ZOLEDRONIC ACID
     Dosage: 1 X INFUSION ZOMETA COLORLESS SOLUTION
     Route: 065
     Dates: start: 20101111
  3. ZOMETA [Suspect]
     Active Substance: ZOLEDRONIC ACID
     Dosage: 1 X INFUSION ZOMETA COLORLESS SOLUTION
     Route: 065
     Dates: start: 20100413
  4. ZOMETA [Suspect]
     Active Substance: ZOLEDRONIC ACID
     Dosage: 1 X INFUSION ZOMETA COLORLESS SOLUTION
     Route: 065
     Dates: start: 20120720
  5. ZOMETA [Suspect]
     Active Substance: ZOLEDRONIC ACID
     Dosage: 1 X INFUSION ZOMETA COLORLESS SOLUTION
     Route: 065
     Dates: start: 20110511
  6. ZOMETA [Suspect]
     Active Substance: ZOLEDRONIC ACID
     Dosage: 1 X INFUSION ZOMETA COLORLESS SOLUTION
     Route: 065
     Dates: start: 20111202

REACTIONS (8)
  - Osteonecrosis of jaw [Not Recovered/Not Resolved]
  - Oral disorder [Unknown]
  - Mouth swelling [Unknown]
  - Soft tissue infection [Unknown]
  - Osteomyelitis [Unknown]
  - Oral pain [Unknown]
  - Gingivitis [Unknown]
  - Mastication disorder [Unknown]

NARRATIVE: CASE EVENT DATE: 20141209
